FAERS Safety Report 8594003-3 (Version None)
Quarter: 2012Q3

REPORT INFORMATION
  Report Type: 
  Country: None (occurrence: None)
  Receive Date: 20120814
  Receipt Date: 20120813
  Transmission Date: 20120928
  Serious: Yes (Other)
  Sender: FDA-Public Use
  Company Number: US-FRI-1000037812

PATIENT
  Age: 79 Year
  Sex: Female

DRUGS (6)
  1. OXYCONTIN [Suspect]
     Indication: PAIN
  2. MORPHINE [Suspect]
     Indication: PAIN
     Dates: start: 20111101, end: 20120201
  3. VICODIN [Concomitant]
     Indication: PAIN
     Dosage: AS NEEDED
  4. LUNESTA [Suspect]
     Dosage: 3 MG
  5. OXYCONTIN [Suspect]
     Dosage: 40 MG EVERY 8 HOURS AS NEEDED
  6. LEXAPRO [Suspect]
     Indication: DEPRESSION
     Dosage: 20 MG
     Route: 048
     Dates: start: 20070101

REACTIONS (6)
  - HALLUCINATION, VISUAL [None]
  - TOXICITY TO VARIOUS AGENTS [None]
  - SOMNOLENCE [None]
  - CRYING [None]
  - DRUG INTERACTION [None]
  - HALLUCINATION, AUDITORY [None]
